FAERS Safety Report 17487156 (Version 1)
Quarter: 2020Q1

REPORT INFORMATION
  Report Type: Spontaneous
  Country: US (occurrence: US)
  Receive Date: 20200303
  Receipt Date: 20200303
  Transmission Date: 20200409
  Serious: Yes (Death, Hospitalization, Other)
  Sender: FDA-Public Use
  Company Number: US-TEVA-2020-US-1193587

PATIENT
  Age: 68 Year
  Sex: Female

DRUGS (10)
  1. FUROSEMIDE. [Concomitant]
     Active Substance: FUROSEMIDE
     Route: 065
  2. SODIUM BICARBONATE. [Suspect]
     Active Substance: SODIUM BICARBONATE
     Indication: TOXICITY TO VARIOUS AGENTS
     Dosage: DRIP
     Route: 065
  3. MELOXICAM. [Concomitant]
     Active Substance: MELOXICAM
     Route: 065
  4. FLUTICASONE. [Concomitant]
     Active Substance: FLUTICASONE
     Route: 065
  5. ESCITALOPRAM [Concomitant]
     Active Substance: ESCITALOPRAM OXALATE
     Route: 065
  6. COLCHICINE. [Suspect]
     Active Substance: COLCHICINE
     Dosage: 86 TABLETS INGESTED
     Route: 048
  7. QUETIAPINE. [Concomitant]
     Active Substance: QUETIAPINE
     Route: 065
  8. OMEPRAZOLE. [Concomitant]
     Active Substance: OMEPRAZOLE
     Route: 065
  9. METOPROLOL. [Concomitant]
     Active Substance: METOPROLOL
     Route: 065
  10. NOREPINEPHRINE. [Suspect]
     Active Substance: NOREPINEPHRINE
     Indication: TOXICITY TO VARIOUS AGENTS
     Dosage: DRIP
     Route: 065

REACTIONS (14)
  - Lethargy [Not Recovered/Not Resolved]
  - Hypotension [Unknown]
  - Pulmonary oedema [Unknown]
  - Completed suicide [Fatal]
  - Incontinence [Not Recovered/Not Resolved]
  - Toxicity to various agents [Fatal]
  - Nodal rhythm [Unknown]
  - Hepatomegaly [Not Recovered/Not Resolved]
  - Drug ineffective [Unknown]
  - Cardiomegaly [Unknown]
  - Nephrosclerosis [Not Recovered/Not Resolved]
  - Intentional overdose [Fatal]
  - Vomiting [Not Recovered/Not Resolved]
  - Renal impairment [Unknown]
